FAERS Safety Report 22313077 (Version 1)
Quarter: 2023Q2

REPORT INFORMATION
  Report Type: Other
  Country: None (occurrence: NL)
  Receive Date: 20230512
  Receipt Date: 20230512
  Transmission Date: 20230722
  Serious: Yes (Other)
  Sender: FDA-Public Use
  Company Number: NL-OrBion Pharmaceuticals Private Limited-2141397

PATIENT
  Age: 55 Year
  Sex: Male

DRUGS (1)
  1. VENLAFAXINE HYDROCHLORIDE [Suspect]
     Active Substance: VENLAFAXINE HYDROCHLORIDE
     Indication: Depression
     Route: 065
     Dates: start: 2002, end: 2008

REACTIONS (11)
  - Male orgasmic disorder [Unknown]
  - Libido decreased [Unknown]
  - Electric shock sensation [Unknown]
  - Hyperhidrosis [Unknown]
  - Hypertonic bladder [Unknown]
  - Urinary incontinence [Unknown]
  - Erection increased [Unknown]
  - Erectile dysfunction [Unknown]
  - Ejaculation delayed [Unknown]
  - Libido increased [Unknown]
  - Antidepressant discontinuation syndrome [Unknown]

NARRATIVE: CASE EVENT DATE: 20020101
